FAERS Safety Report 18928440 (Version 1)
Quarter: 2021Q1

REPORT INFORMATION
  Report Type: Spontaneous
  Country: US (occurrence: US)
  Receive Date: 20210223
  Receipt Date: 20210223
  Transmission Date: 20210420
  Serious: No
  Sender: FDA-Public Use
  Company Number: US-AMGEN-USASP2021025369

PATIENT
  Age: 36 Year
  Sex: Female

DRUGS (1)
  1. EPOETIN ALFA [Suspect]
     Active Substance: ERYTHROPOIETIN
     Indication: SICKLE CELL DISEASE
     Dosage: UNK
     Route: 065

REACTIONS (1)
  - Off label use [Unknown]
